FAERS Safety Report 7898531-5 (Version None)
Quarter: 2011Q4

REPORT INFORMATION
  Report Type: 
  Country: None (occurrence: None)
  Receive Date: 20111107
  Receipt Date: 20111101
  Transmission Date: 20120403
  Serious: Yes (Hospitalization, Other)
  Sender: FDA-Public Use
  Company Number: AU-B.I. PHARMACEUTICALS,INC./RIDGEFIELD-2011-AU-01924AU

PATIENT
  Sex: Male

DRUGS (9)
  1. PRADAXA [Suspect]
     Indication: ATRIAL FIBRILLATION
     Dosage: 220 MG
     Dates: end: 20110901
  2. FUROSEMIDE [Concomitant]
  3. PRAMIPEXOLE DIHYDROCHLORIDE [Concomitant]
  4. NEXIUM [Concomitant]
  5. SLOW-K [Concomitant]
  6. PREDNISONE [Concomitant]
  7. FLUTICASONE PROPIONATE/SALMETEROL [Concomitant]
  8. NICORANDIL [Concomitant]
  9. DURIDE [Concomitant]

REACTIONS (5)
  - PULMONARY EMBOLISM [None]
  - RECTAL HAEMORRHAGE [None]
  - INGUINAL HERNIA [None]
  - CHEST PAIN [None]
  - COLONIC POLYP [None]
